FAERS Safety Report 16059491 (Version 3)
Quarter: 2019Q2

REPORT INFORMATION
  Report Type: Report from Study
  Country: US (occurrence: US)
  Receive Date: 20190311
  Receipt Date: 20190528
  Transmission Date: 20190711
  Serious: Yes (Death, Hospitalization)
  Sender: FDA-Public Use
  Company Number: US-ACTELION-A-NJ2019-187163

PATIENT
  Age: 70 Year
  Sex: Female

DRUGS (8)
  1. OPSUMIT [Suspect]
     Active Substance: MACITENTAN
     Indication: PULMONARY HYPERTENSION
     Dosage: 10 MG, QD
     Route: 048
     Dates: start: 20181115
  2. KCL [Concomitant]
     Active Substance: POTASSIUM CHLORIDE
     Dosage: 20 MG, QD
  3. MELOXICAM. [Concomitant]
     Active Substance: MELOXICAM
     Dosage: 18 G, QD
  4. TORSEMIDE. [Concomitant]
     Active Substance: TORSEMIDE
     Dosage: 40 G, QD
  5. GABAPENTIN. [Concomitant]
     Active Substance: GABAPENTIN
     Dosage: 30 G, TID
  6. ALBUTEROL. [Concomitant]
     Active Substance: ALBUTEROL
     Dosage: UNK, PRN
  7. ATORVASTATIN [Concomitant]
     Active Substance: ATORVASTATIN
     Dosage: 20 G, QD
  8. DEXTROSE. [Concomitant]
     Active Substance: DEXTROSE
     Dosage: 180 G, QD

REACTIONS (5)
  - Hypoxia [Unknown]
  - Syncope [Unknown]
  - Product dose omission [Unknown]
  - Death [Fatal]
  - Pulmonary hypertension [Unknown]

NARRATIVE: CASE EVENT DATE: 20190225
